FAERS Safety Report 21075132 (Version 1)
Quarter: 2022Q3

REPORT INFORMATION
  Report Type: Spontaneous
  Country: US (occurrence: US)
  Receive Date: 20220713
  Receipt Date: 20220713
  Transmission Date: 20221027
  Serious: Yes (Hospitalization, Other)
  Sender: FDA-Public Use
  Company Number: US-BRISTOL-MYERS SQUIBB COMPANY-2022-057187

PATIENT
  Age: 74 Year
  Sex: Male
  Weight: 86.2 kg

DRUGS (17)
  1. POMALYST [Suspect]
     Active Substance: POMALIDOMIDE
     Indication: Product used for unknown indication
     Route: 065
  2. ZOVIRAX [Concomitant]
     Active Substance: ACYCLOVIR
  3. ALBUTEROL SULFATE [Concomitant]
     Active Substance: ALBUTEROL SULFATE
     Route: 055
  4. NORVASC [Concomitant]
     Active Substance: AMLODIPINE BESYLATE
  5. MEPRON [Concomitant]
     Active Substance: ATOVAQUONE
     Dosage: 750 MG/5 ML
  6. PLAVIX [Concomitant]
     Active Substance: CLOPIDOGREL BISULFATE
  7. DIETARY SUPPLEMENT\UBIDECARENONE [Concomitant]
     Active Substance: DIETARY SUPPLEMENT\UBIDECARENONE
  8. VITAMINS [Concomitant]
     Active Substance: VITAMINS
     Route: 048
  9. VOLTAREN [Concomitant]
     Active Substance: DICLOFENAC SODIUM
  10. CYMBALTA [Concomitant]
     Active Substance: DULOXETINE HYDROCHLORIDE
  11. JARDIANCE [Concomitant]
     Active Substance: EMPAGLIFLOZIN
  12. GLUCO [GLUCOSAMINE SULFATE] [Concomitant]
     Dosage: 1500 COMPLEX
     Route: 048
  13. HUMALOG MIX50/50 [Concomitant]
     Active Substance: INSULIN LISPRO
  14. DUONEB [Concomitant]
     Active Substance: ALBUTEROL SULFATE\IPRATROPIUM BROMIDE
     Dosage: 0.5 MG-3 MG BASE)/3 ML SOLUTION FOR NEBULIZATION
  15. COZAAR [Concomitant]
     Active Substance: LOSARTAN POTASSIUM
  16. PROTONIX [Concomitant]
     Active Substance: PANTOPRAZOLE SODIUM
  17. KENALOG [Concomitant]
     Active Substance: TRIAMCINOLONE ACETONIDE

REACTIONS (3)
  - COVID-19 [Recovering/Resolving]
  - Pneumonia [Recovering/Resolving]
  - Acute respiratory failure [Recovering/Resolving]
